FAERS Safety Report 5213065-4 (Version None)
Quarter: 2007Q1

REPORT INFORMATION
  Report Type: 
  Country: None (occurrence: None)
  Receive Date: 20070119
  Receipt Date: 20061023
  Transmission Date: 20070707
  Serious: Yes (Hospitalization, Other)
  Sender: FDA-Public Use
  Company Number: US-GLAXOSMITHKLINE-A0624472A

PATIENT
  Age: 33 Year
  Sex: Male

DRUGS (1)
  1. HYCAMTIN [Suspect]
     Dates: start: 20060918, end: 20060922

REACTIONS (2)
  - CONSTIPATION [None]
  - RASH [None]
